FAERS Safety Report 13208356 (Version 1)
Quarter: 2017Q1

REPORT INFORMATION
  Report Type: Spontaneous
  Country: US (occurrence: US)
  Receive Date: 20170209
  Receipt Date: 20170209
  Transmission Date: 20170428
  Serious: Yes (Other)
  Sender: FDA-Public Use
  Company Number: PHEH2017US004171

PATIENT
  Sex: Female

DRUGS (1)
  1. TRILEPTAL [Suspect]
     Active Substance: OXCARBAZEPINE
     Indication: PRODUCT USED FOR UNKNOWN INDICATION
     Route: 048

REACTIONS (10)
  - Seizure [Unknown]
  - Speech disorder [Unknown]
  - Injury [Unknown]
  - Shock [Unknown]
  - Dysstasia [Unknown]
  - Pain [Unknown]
  - Motor dysfunction [Unknown]
  - Gait disturbance [Unknown]
  - Emotional disorder [Unknown]
  - Emotional distress [Unknown]
